FAERS Safety Report 23532930 (Version 2)
Quarter: 2024Q2

REPORT INFORMATION
  Report Type: Report from Study
  Country: US (occurrence: US)
  Receive Date: 20240216
  Receipt Date: 20240403
  Transmission Date: 20240716
  Serious: Yes (Hospitalization, Other)
  Sender: FDA-Public Use
  Company Number: US-ARGENX-2024-ARGX-US000541

PATIENT

DRUGS (1)
  1. VYVGART [Suspect]
     Active Substance: EFGARTIGIMOD ALFA-FCAB
     Indication: Myasthenia gravis
     Dosage: UNK
     Route: 042
     Dates: start: 20220218

REACTIONS (9)
  - Syncope [Unknown]
  - Hypotension [Unknown]
  - Fall [Unknown]
  - Shoulder fracture [Unknown]
  - Syncope [Unknown]
  - Muscle tension dysphonia [Unknown]
  - COVID-19 [Unknown]
  - Gastroenteritis viral [Unknown]
  - Bacterial infection [Unknown]

NARRATIVE: CASE EVENT DATE: 20231223
